FAERS Safety Report 6878514-4 (Version None)
Quarter: 2010Q3

REPORT INFORMATION
  Report Type: 
  Country: None (occurrence: None)
  Receive Date: 20100727
  Receipt Date: 20100716
  Transmission Date: 20110219
  Serious: Yes (Hospitalization, Other)
  Sender: FDA-Public Use
  Company Number: US-ABBOTT-10P-163-0653460-00

PATIENT
  Sex: Female
  Weight: 73.548 kg

DRUGS (5)
  1. HUMIRA [Suspect]
     Indication: CROHN'S DISEASE
     Dates: start: 20100501
  2. METRONIDAZOLE [Concomitant]
     Indication: LARGE INTESTINE PERFORATION
     Dates: start: 20100612
  3. PENTAZA [Concomitant]
     Indication: CROHN'S DISEASE
  4. ENTACORT [Concomitant]
     Indication: CROHN'S DISEASE
  5. FOLIC ACID [Concomitant]
     Indication: CROHN'S DISEASE

REACTIONS (6)
  - ABDOMINAL PAIN [None]
  - BALANCE DISORDER [None]
  - FEELING ABNORMAL [None]
  - FLATULENCE [None]
  - LARGE INTESTINE PERFORATION [None]
  - PYREXIA [None]
